FAERS Safety Report 4692031-1 (Version None)
Quarter: 2005Q2

REPORT INFORMATION
  Report Type: 
  Country: None (occurrence: None)
  Receive Date: 20050616
  Receipt Date: 20050616
  Transmission Date: 20051028
  Serious: Yes (Hospitalization)
  Sender: FDA-Public Use
  Company Number: None

PATIENT
  Age: 53 Year
  Sex: Male
  Weight: 114.76 kg

DRUGS (2)
  1. BENAZEPRIL HCL [Suspect]
     Indication: HYPERTENSION
     Dosage: 40 MG   DAILY   ORAL
     Route: 048
     Dates: start: 20050227, end: 20050314
  2. HYDROCHOLORTHIAZIDE [Concomitant]

REACTIONS (7)
  - BLOOD PRESSURE INADEQUATELY CONTROLLED [None]
  - CARDIAC FAILURE CONGESTIVE [None]
  - CREATININE RENAL CLEARANCE DECREASED [None]
  - HYPERTENSION [None]
  - LOCALISED OEDEMA [None]
  - SWELLING FACE [None]
  - SWOLLEN TONGUE [None]
